FAERS Safety Report 8177662-9 (Version None)
Quarter: 2012Q1

REPORT INFORMATION
  Report Type: 
  Country: None (occurrence: None)
  Receive Date: 20120301
  Receipt Date: 20120220
  Transmission Date: 20120608
  Serious: Yes (Other)
  Sender: FDA-Public Use
  Company Number: US-ROCHE-1042235

PATIENT
  Sex: Female
  Weight: 59.02 kg

DRUGS (2)
  1. LISINOPRIL [Concomitant]
     Route: 048
  2. AVASTIN [Suspect]
     Indication: NON-SMALL CELL LUNG CANCER
     Route: 042
     Dates: start: 20120201

REACTIONS (3)
  - FULL BLOOD COUNT DECREASED [None]
  - FEELING ABNORMAL [None]
  - NEUTROPENIA [None]
